FAERS Safety Report 10158416 (Version 2)
Quarter: 2014Q2

REPORT INFORMATION
  Report Type: Spontaneous
  Country: CH (occurrence: CH)
  Receive Date: 20140507
  Receipt Date: 20140606
  Transmission Date: 20141212
  Serious: Yes (Hospitalization)
  Sender: FDA-Public Use
  Company Number: CH-ALLERGAN-1408950US

PATIENT
  Age: 19 Year
  Sex: Male

DRUGS (3)
  1. BOTOX LYOPHILISAT [Suspect]
     Indication: BLEPHAROSPASM
     Dosage: 36 UNITS, SINGLE
     Route: 030
     Dates: start: 20140220, end: 20140220
  2. STRATTERA [Concomitant]
     Indication: TOURETTE^S DISORDER
     Route: 048
  3. TIAPRIDE [Concomitant]
     Indication: TOURETTE^S DISORDER
     Route: 048

REACTIONS (5)
  - Herpes zoster meningoencephalitis [Recovered/Resolved]
  - Nausea [Recovered/Resolved]
  - Headache [Recovered/Resolved]
  - Vomiting [Recovered/Resolved]
  - Vertigo [Recovered/Resolved]
